FAERS Safety Report 5155369-X (Version None)
Quarter: 2006Q4

REPORT INFORMATION
  Report Type: 
  Country: None (occurrence: None)
  Receive Date: 20061114
  Receipt Date: 20061108
  Transmission Date: 20070319
  Serious: Yes (Other)
  Sender: FDA-Public Use
  Company Number: 2006SP005900

PATIENT
  Age: 84 Year
  Sex: Female

DRUGS (1)
  1. NASONEX [Suspect]
     Indication: DRUG USE FOR UNKNOWN INDICATION
     Dosage: 4 DF;QD;NAS
     Route: 045
     Dates: start: 20061030, end: 20061101

REACTIONS (3)
  - BLINDNESS UNILATERAL [None]
  - VISION BLURRED [None]
  - VISUAL FIELD DEFECT [None]
